FAERS Safety Report 7944884-9 (Version None)
Quarter: 2011Q4

REPORT INFORMATION
  Report Type: 
  Country: None (occurrence: None)
  Receive Date: 20111129
  Receipt Date: 20111121
  Transmission Date: 20120403
  Serious: Yes (Life-Threatening, Hospitalization)
  Sender: FDA-Public Use
  Company Number: FR-VERTEX PHARMACEUTICALS INC.-AE-2011-003611

PATIENT
  Sex: Male

DRUGS (6)
  1. PEGASYS [Concomitant]
     Indication: HEPATITIS C
     Route: 058
  2. ZOLPIDEM [Concomitant]
     Indication: PRODUCT USED FOR UNKNOWN INDICATION
     Route: 048
  3. INCIVO (TELAPREVIR) [Suspect]
     Indication: HEPATITIS C
     Route: 048
  4. COPEGUS [Concomitant]
     Indication: HEPATITIS C
     Route: 048
  5. HAVLANE [Concomitant]
     Indication: PRODUCT USED FOR UNKNOWN INDICATION
  6. NEORECORMON [Concomitant]
     Indication: PRODUCT USED FOR UNKNOWN INDICATION
     Route: 058

REACTIONS (7)
  - MULTIPLE DRUG OVERDOSE [None]
  - SEDATION [None]
  - FALL [None]
  - EXTRASYSTOLES [None]
  - SUICIDE ATTEMPT [None]
  - PANCYTOPENIA [None]
  - RHABDOMYOLYSIS [None]
